FAERS Safety Report 8573261-5 (Version None)
Quarter: 2012Q3

REPORT INFORMATION
  Report Type: 
  Country: None (occurrence: None)
  Receive Date: 20120806
  Receipt Date: 20120730
  Transmission Date: 20120928
  Serious: Yes (Hospitalization)
  Sender: FDA-Public Use
  Company Number: DE-UCBSA-062922

PATIENT
  Age: 67 Year
  Sex: Female

DRUGS (8)
  1. ASPIRIN [Concomitant]
     Dosage: 100
     Dates: start: 19990101
  2. ISMN [Concomitant]
     Dosage: FOR 5 MONTHS
  3. CIMZIA [Suspect]
     Indication: POLYARTHRITIS
     Dates: start: 20110901, end: 20110101
  4. GLUCOCORTICOIDS [Concomitant]
     Dates: start: 19990101
  5. ADALIMUMAB [Concomitant]
     Dates: start: 20100801, end: 20110901
  6. DICLOFENAC RATIOPHARM [Concomitant]
     Dates: start: 20050101
  7. ACTONEL [Concomitant]
     Dosage: 35,
     Dates: start: 20100201
  8. OMEPRAZOLE [Concomitant]
     Dosage: 20
     Dates: start: 20050501

REACTIONS (1)
  - BRONCHITIS [None]
